FAERS Safety Report 8354605-6 (Version None)
Quarter: 2012Q2

REPORT INFORMATION
  Report Type: 
  Country: None (occurrence: None)
  Receive Date: 20120511
  Receipt Date: 20120509
  Transmission Date: 20120825
  Serious: Yes (Other)
  Sender: FDA-Public Use
  Company Number: US-MERCK-1201USA03953

PATIENT
  Age: 72 Year
  Sex: Female
  Weight: 43 kg

DRUGS (5)
  1. CARBOPLATIN [Concomitant]
     Indication: LUNG NEOPLASM MALIGNANT
     Route: 042
  2. FOSAPREPITANT DIMEGLUMINE [Suspect]
     Indication: PROPHYLAXIS OF NAUSEA AND VOMITING
     Route: 041
     Dates: start: 20120120, end: 20120120
  3. ALIMTA [Concomitant]
     Indication: LUNG NEOPLASM MALIGNANT
     Route: 042
  4. ALOXI [Concomitant]
     Indication: LUNG NEOPLASM MALIGNANT
     Route: 042
  5. DECADRON [Concomitant]
     Indication: LUNG NEOPLASM MALIGNANT
     Route: 042

REACTIONS (5)
  - WRONG TECHNIQUE IN DRUG USAGE PROCESS [None]
  - FLUSHING [None]
  - OXYGEN SATURATION DECREASED [None]
  - CHEST DISCOMFORT [None]
  - BACK PAIN [None]
